FAERS Safety Report 15425663 (Version 9)
Quarter: 2020Q2

REPORT INFORMATION
  Report Type: Spontaneous
  Country: CA (occurrence: CA)
  Receive Date: 20180925
  Receipt Date: 20200521
  Transmission Date: 20200713
  Serious: Yes (Hospitalization, Other)
  Sender: FDA-Public Use
  Company Number: CA-PFIZER INC-2018386636

PATIENT
  Age: 49 Year
  Sex: Female

DRUGS (11)
  1. PANTOPRAZOLE [Suspect]
     Active Substance: PANTOPRAZOLE
     Dosage: 1 DF, DAILY
  2. MAGNESIUM [Concomitant]
     Active Substance: MAGNESIUM
     Dosage: UNK
     Dates: start: 201902
  3. PANTOPRAZOLE [Suspect]
     Active Substance: PANTOPRAZOLE
     Dosage: 40 MILLIGRAM, BID
     Route: 065
     Dates: start: 201706
  4. MORPHINE SULFATE. [Suspect]
     Active Substance: MORPHINE SULFATE
     Dosage: UNK
     Route: 065
  5. TEMODAL [Suspect]
     Active Substance: TEMOZOLOMIDE
     Dosage: 335 MILLIGRAM, QD
     Route: 065
     Dates: start: 201606, end: 2018
  6. SULFATRIM [Concomitant]
     Active Substance: SULFAMETHOXAZOLE\TRIMETHOPRIM
     Dosage: UNK UNK, Q3WEEKS
     Dates: end: 2016
  7. SANDOSTATIN LAR DEPOT [Suspect]
     Active Substance: OCTREOTIDE ACETATE
     Dosage: 30 MILLIGRAM, MONTHLY
     Route: 030
     Dates: start: 20181010
  8. DOMPERIDONE [Concomitant]
     Active Substance: DOMPERIDONE
     Indication: DYSPEPSIA
     Dosage: 10 MILLIGRAM, TID
     Route: 048
     Dates: start: 201707
  9. SANDOSTATIN LAR DEPOT [Suspect]
     Active Substance: OCTREOTIDE ACETATE
     Indication: CARCINOID TUMOUR
     Dosage: 30 MILLIGRAM, Q4WEEKS
     Route: 030
     Dates: start: 20151209
  10. DEXILANT [Concomitant]
     Active Substance: DEXLANSOPRAZOLE
     Dosage: UNK
  11. CODEINE [Suspect]
     Active Substance: CODEINE
     Dosage: UNK
     Route: 065

REACTIONS (37)
  - Nausea [Recovered/Resolved]
  - Erythema nodosum [Unknown]
  - Discomfort [Unknown]
  - Injection site pain [Unknown]
  - Contusion [Recovered/Resolved]
  - Hypotension [Unknown]
  - Feeling hot [Unknown]
  - Headache [Unknown]
  - Nausea [Unknown]
  - Body temperature decreased [Unknown]
  - Cough [Unknown]
  - Bronchial disorder [Unknown]
  - Nasopharyngitis [Unknown]
  - Diarrhoea [Unknown]
  - Neoplasm progression [Unknown]
  - Oropharyngeal pain [Unknown]
  - Influenza [Unknown]
  - Gastritis fungal [Unknown]
  - Mood altered [Unknown]
  - Fatigue [Unknown]
  - Heart rate decreased [Unknown]
  - Rhinorrhoea [Unknown]
  - Vomiting [Recovered/Resolved]
  - Stress [Unknown]
  - Pain [Unknown]
  - Needle issue [Unknown]
  - Musculoskeletal pain [Recovered/Resolved]
  - Gait disturbance [Unknown]
  - Decreased immune responsiveness [Unknown]
  - Ecchymosis [Recovered/Resolved]
  - Dehydration [Unknown]
  - Myocardial infarction [Unknown]
  - Carcinoid tumour [Not Recovered/Not Resolved]
  - Psychiatric symptom [Unknown]
  - Blood pressure systolic decreased [Unknown]
  - Back pain [Recovering/Resolving]
  - Alopecia [Unknown]

NARRATIVE: CASE EVENT DATE: 2016
